FAERS Safety Report 25628114 (Version 1)
Quarter: 2025Q3

REPORT INFORMATION
  Report Type: Spontaneous
  Country: US (occurrence: US)
  Receive Date: 20250731
  Receipt Date: 20250731
  Transmission Date: 20251021
  Serious: No
  Sender: APOTEX
  Company Number: US-APOTEX-2025AP010301

PATIENT
  Age: 39 Year
  Sex: Female

DRUGS (2)
  1. DEXAMETHASONE [Suspect]
     Active Substance: DEXAMETHASONE
     Indication: Product used for unknown indication
     Route: 065
  2. CYTARABINE [Suspect]
     Active Substance: CYTARABINE
     Indication: Langerhans^ cell histiocytosis
     Dosage: 100 MILLIGRAM/SQ. METER, QD (FOR 5 DAYS EVERY MONTH)
     Route: 065

REACTIONS (3)
  - Hypoaesthesia [Recovering/Resolving]
  - Facial paresis [Recovering/Resolving]
  - Muscular weakness [Recovering/Resolving]
